FAERS Safety Report 7136900-1 (Version None)
Quarter: 2010Q4

REPORT INFORMATION
  Report Type: 
  Country: None (occurrence: None)
  Receive Date: 20101206
  Receipt Date: 20090303
  Transmission Date: 20110411
  Serious: Yes (Death)
  Sender: FDA-Public Use
  Company Number: US-ACTELION-A-NJ2008-21892

PATIENT

DRUGS (2)
  1. TRACLEER [Suspect]
     Indication: PULMONARY HYPERTENSION
     Route: 048
     Dates: start: 20080619, end: 20080101
  2. COUMADIN [Concomitant]

REACTIONS (4)
  - DEATH [None]
  - DRUG INEFFECTIVE FOR UNAPPROVED INDICATION [None]
  - PRURITUS GENERALISED [None]
  - RASH [None]
